FAERS Safety Report 10927308 (Version 7)
Quarter: 2018Q3

REPORT INFORMATION
  Report Type: Spontaneous
  Country: KR (occurrence: KR)
  Receive Date: 20150318
  Receipt Date: 20180907
  Transmission Date: 20181010
  Serious: Yes (Death, Hospitalization)
  Sender: FDA-Public Use
  Company Number: KR-009507513-1503KOR006775

PATIENT
  Age: 70 Year
  Sex: Male
  Weight: 74 kg

DRUGS (18)
  1. NORZYME [Concomitant]
     Indication: PROPHYLAXIS
     Dosage: 457.7 MG, TID
     Route: 048
     Dates: start: 20141120
  2. MINIRIN [Concomitant]
     Active Substance: DESMOPRESSIN ACETATE
     Indication: PROPHYLAXIS
     Dosage: 0.05 MG, ONCE
     Dates: start: 20141113, end: 20141121
  3. UFT [Concomitant]
     Active Substance: TEGAFUR\URACIL
     Indication: ADJUVANT THERAPY
     Dosage: 0.5 G, TID
     Route: 048
     Dates: start: 20141113, end: 20141113
  4. MUCOSTEN [Concomitant]
     Indication: PROPHYLAXIS
     Dosage: 600 MG, ONCE
     Route: 042
     Dates: start: 20141114, end: 20141114
  5. TIROPA (TIROPRAMIDE HYDROCHLORIDE) [Concomitant]
     Indication: PROPHYLAXIS
     Dosage: 100 MG, TID
     Route: 048
     Dates: start: 20141122
  6. FLIVAS [Concomitant]
     Active Substance: NAFTOPIDIL
     Indication: BENIGN PROSTATIC HYPERPLASIA
     Dosage: 50 MG, ONCE
     Route: 048
     Dates: start: 20141113, end: 20141121
  7. SELENASE [Concomitant]
     Indication: POSTOPERATIVE CARE
     Dosage: 500 MICROGRAM, BID
     Route: 041
     Dates: start: 20141120, end: 20141127
  8. BUSCOPAN [Concomitant]
     Active Substance: BUTYLSCOPOLAMINE BROMIDE
     Indication: PAIN PROPHYLAXIS
     Dosage: 20 MG, ONCE
     Route: 030
     Dates: start: 20141113, end: 20141113
  9. HARNAL [Concomitant]
     Active Substance: TAMSULOSIN HYDROCHLORIDE
     Indication: PROPHYLAXIS
     Dosage: 0.2 MG, ONCE
     Route: 048
     Dates: start: 20141113, end: 20141113
  10. BRIDION [Suspect]
     Active Substance: SUGAMMADEX
     Indication: NEUROMUSCULAR BLOCKADE REVERSAL
     Dosage: 2 MG/KG, 148 MG, ONCE
     Route: 042
     Dates: start: 20141120, end: 20141120
  11. DEXILANT [Concomitant]
     Active Substance: DEXLANSOPRAZOLE
     Indication: PROPHYLAXIS
     Dosage: 30 MG, ONCE
     Route: 048
     Dates: start: 20141113, end: 20141123
  12. PORTALAK [Concomitant]
     Active Substance: LACTULOSE
     Indication: CONSTIPATION PROPHYLAXIS
     Dosage: 20 G, ONCE
     Route: 048
     Dates: start: 20141121
  13. DUMIROX [Concomitant]
     Active Substance: FLUVOXAMINE MALEATE
     Indication: PROPHYLAXIS
     Dosage: 50 MG, ONCE
     Route: 048
     Dates: start: 20141120, end: 20141123
  14. TRIAXON [Concomitant]
     Indication: INFECTION PROPHYLAXIS
     Dosage: 2000 MG, ONCE, ROUTE: INFUSION
     Dates: start: 20141120
  15. RHINATHIOL [Concomitant]
     Active Substance: CARBOCYSTEINE
     Indication: PROPHYLAXIS
     Dosage: 500 MG, TID
     Route: 048
     Dates: start: 20141113, end: 20141113
  16. ROCURONIUM BROMIDE. [Suspect]
     Active Substance: ROCURONIUM BROMIDE
     Indication: MUSCLE RELAXANT THERAPY
     Dosage: 50 MG, ONCE
     Route: 042
     Dates: start: 20141120, end: 20141120
  17. ZINC (UNSPECIFIED) [Concomitant]
     Active Substance: ZINC
     Indication: PROPHYLAXIS
     Dosage: 20 MG, INFUSION
     Dates: start: 20141120, end: 20141120
  18. URO?VAXOM [Concomitant]
     Indication: PROPHYLAXIS
     Dosage: 6 MG, ONCE
     Route: 048
     Dates: start: 20141113, end: 20141123

REACTIONS (2)
  - Abdominal pain [Recovering/Resolving]
  - Respiratory disorder [Fatal]

NARRATIVE: CASE EVENT DATE: 20141209
